FAERS Safety Report 8523455-X (Version None)
Quarter: 2012Q3

REPORT INFORMATION
  Report Type: 
  Country: None (occurrence: None)
  Receive Date: 20120720
  Receipt Date: 20120713
  Transmission Date: 20120928
  Serious: Yes (Death)
  Sender: FDA-Public Use
  Company Number: IT-JNJFOC-20120708883

PATIENT

DRUGS (10)
  1. CYCLOPHOSPHAMIDE [Suspect]
     Dosage: 75 % REDUCED R-CHOP
     Route: 042
  2. VINCRISTINE [Suspect]
     Indication: DIFFUSE LARGE B-CELL LYMPHOMA
     Dosage: DAY 2 UPTO A MAXIMUM DOSE OF 2 MG
     Route: 042
  3. PREDNISONE [Suspect]
     Indication: DIFFUSE LARGE B-CELL LYMPHOMA
     Dosage: 75 % REDUCED R-CHOP
     Route: 048
  4. PREDNISONE [Suspect]
     Dosage: ON DAYS 1-5
     Route: 048
  5. DOXORUBICIN HCL [Suspect]
     Dosage: 75 % REDUCED R-CHOP
     Route: 042
  6. VINCRISTINE [Suspect]
     Dosage: 75 % REDUCED R-CHOP
     Route: 042
  7. DOXORUBICIN HCL [Suspect]
     Indication: DIFFUSE LARGE B-CELL LYMPHOMA
     Dosage: ON DAY 2
     Route: 042
  8. RITUXIMAB [Suspect]
     Indication: DIFFUSE LARGE B-CELL LYMPHOMA
     Dosage: 75 % REDUCED R-CHOP
     Route: 042
  9. RITUXIMAB [Suspect]
     Dosage: ON DAY 1
     Route: 042
  10. CYCLOPHOSPHAMIDE [Suspect]
     Indication: DIFFUSE LARGE B-CELL LYMPHOMA
     Dosage: ON DAY 2
     Route: 042

REACTIONS (1)
  - MYOCARDIAL INFARCTION [None]
